FAERS Safety Report 24257796 (Version 1)
Quarter: 2024Q3

REPORT INFORMATION
  Report Type: Spontaneous
  Country: GB (occurrence: GB)
  Receive Date: 20240828
  Receipt Date: 20240828
  Transmission Date: 20241016
  Serious: Yes (Hospitalization, Other)
  Sender: MYLAN
  Company Number: GB-MYLANLABS-2022M1033619

PATIENT
  Sex: Male

DRUGS (2)
  1. CLOZARIL [Suspect]
     Active Substance: CLOZAPINE
     Indication: Schizophrenia
     Dosage: UNK
     Route: 048
     Dates: start: 20150928, end: 20220413
  2. CLOZARIL [Suspect]
     Active Substance: CLOZAPINE
     Dosage: 12.5 MILLIGRAM, QD (1 DOSE OF 12.5 MILLIGRAM IN THE EVENING)
     Route: 065
     Dates: start: 20220425, end: 20220427

REACTIONS (5)
  - Generalised tonic-clonic seizure [Recovered/Resolved]
  - Status epilepticus [Unknown]
  - Alcohol poisoning [Unknown]
  - Alcoholism [Unknown]
  - COVID-19 [Unknown]

NARRATIVE: CASE EVENT DATE: 20220426
